FAERS Safety Report 17876607 (Version 3)
Quarter: 2021Q4

REPORT INFORMATION
  Report Type: Report from Study
  Country: US (occurrence: US)
  Receive Date: 20200609
  Receipt Date: 20211122
  Transmission Date: 20220303
  Serious: Yes (Death, Life-Threatening, Hospitalization)
  Sender: FDA-Public Use
  Company Number: US-JNJFOC-20180928932

PATIENT
  Age: 36 Year
  Sex: Female
  Weight: 57.4 kg

DRUGS (15)
  1. DARATUMUMAB [Suspect]
     Active Substance: DARATUMUMAB
     Indication: Acute myeloid leukaemia recurrent
     Route: 042
     Dates: start: 20180629, end: 20180827
  2. ACYCLOVIR SODIUM [Concomitant]
     Active Substance: ACYCLOVIR SODIUM
     Dates: start: 20180730, end: 20180828
  3. OLANZAPINE [Concomitant]
     Active Substance: OLANZAPINE
     Dates: start: 20180730, end: 20180828
  4. DOCUSATE [Concomitant]
     Active Substance: DOCUSATE
     Dates: start: 20180730
  5. SENNA                              /00142201/ [Concomitant]
     Dates: start: 20180730, end: 20180828
  6. PANTOPRAZOLE [Concomitant]
     Active Substance: PANTOPRAZOLE
     Dates: start: 20180730, end: 20180828
  7. GABAPENTIN [Concomitant]
     Active Substance: GABAPENTIN
     Dates: start: 20180730, end: 20180828
  8. METHADONE [Concomitant]
     Active Substance: METHADONE HYDROCHLORIDE
     Dates: start: 20180730, end: 20180808
  9. LIDOCAINE HYDROCHLORIDE [Concomitant]
     Active Substance: LIDOCAINE HYDROCHLORIDE
     Dates: start: 20180731, end: 20180829
  10. POTASSIUM CHLORIDE [Concomitant]
     Active Substance: POTASSIUM CHLORIDE
     Dates: start: 20180823, end: 20180901
  11. LORAZEPAM [Concomitant]
     Active Substance: LORAZEPAM
     Dates: start: 20180904, end: 20180913
  12. CEFUROXIME [Concomitant]
     Active Substance: CEFUROXIME
     Dates: start: 20180904, end: 20181003
  13. METHYLPREDNISOLONE [Concomitant]
     Active Substance: METHYLPREDNISOLONE
     Dates: start: 20180911, end: 20180912
  14. HYDROXYUREA [Concomitant]
     Active Substance: HYDROXYUREA
     Dates: start: 20180919
  15. MAGNESIUM OXIDE [Concomitant]
     Active Substance: MAGNESIUM OXIDE
     Dates: start: 20180920

REACTIONS (6)
  - Respiratory failure [Fatal]
  - Cardiac arrest [Fatal]
  - Sepsis [Fatal]
  - Mental status changes [Recovered/Resolved]
  - Abdominal pain [Recovered/Resolved]
  - Pseudomonas infection [Recovered/Resolved]

NARRATIVE: CASE EVENT DATE: 20180912
